FAERS Safety Report 5076082-3 (Version None)
Quarter: 2006Q3

REPORT INFORMATION
  Report Type: 
  Country: None (occurrence: None)
  Receive Date: 20060809
  Receipt Date: 20051212
  Transmission Date: 20061208
  Serious: No
  Sender: FDA-Public Use
  Company Number: US-AMGEN-KDL161303

PATIENT
  Sex: Female
  Weight: 41.6 kg

DRUGS (4)
  1. PROCRIT [Suspect]
     Indication: RENAL FAILURE CHRONIC
     Route: 058
     Dates: start: 20020501, end: 20051214
  2. CELLCEPT [Concomitant]
  3. PREDNISONE [Concomitant]
  4. GENGRAF [Concomitant]
     Dates: start: 20031001

REACTIONS (2)
  - HAEMOGLOBIN DECREASED [None]
  - RETICULOCYTE COUNT DECREASED [None]
